FAERS Safety Report 12006436 (Version 1)
Quarter: 2016Q1

REPORT INFORMATION
  Report Type: Spontaneous
  Country: US (occurrence: US)
  Receive Date: 20160204
  Receipt Date: 20160204
  Transmission Date: 20160526
  Serious: No
  Sender: FDA-Public Use
  Company Number: US-FRI-1000080828

PATIENT
  Age: 50 Year
  Sex: Female

DRUGS (6)
  1. FETZIMA [Suspect]
     Active Substance: LEVOMILNACIPRAN HYDROCHLORIDE
     Indication: DEPRESSION
     Dosage: 80MG
     Route: 048
     Dates: start: 20151030, end: 20151104
  2. OXYCONTIN [Concomitant]
     Active Substance: OXYCODONE HYDROCHLORIDE
  3. ZOCOR [Concomitant]
     Active Substance: SIMVASTATIN
  4. METOPROLOL. [Concomitant]
     Active Substance: METOPROLOL
  5. FETZIMA [Suspect]
     Active Substance: LEVOMILNACIPRAN HYDROCHLORIDE
     Indication: AFFECTIVE DISORDER
     Dosage: 120MG
     Route: 048
     Dates: start: 20151105
  6. ESTRADIOL. [Concomitant]
     Active Substance: ESTRADIOL

REACTIONS (1)
  - Hyperhidrosis [Not Recovered/Not Resolved]
